FAERS Safety Report 5521249-0 (Version None)
Quarter: 2007Q4

REPORT INFORMATION
  Report Type: 
  Country: None (occurrence: None)
  Receive Date: 20071119
  Receipt Date: 20071109
  Transmission Date: 20080405
  Serious: Yes (Disabling)
  Sender: FDA-Public Use
  Company Number: US-ASTRAZENECA-2007UW17000

PATIENT
  Age: 8956 Day
  Sex: Male
  Weight: 70.5 kg

DRUGS (4)
  1. SEROQUEL [Suspect]
     Indication: BIPOLAR DISORDER
     Route: 048
     Dates: start: 20040301, end: 20050426
  2. SEROQUEL [Suspect]
     Route: 048
     Dates: start: 20040501
  3. ZYPREXA [Concomitant]
     Dates: start: 20010424, end: 20030301
  4. LAMICTAL [Concomitant]

REACTIONS (9)
  - CHEST PAIN [None]
  - DIABETES MELLITUS [None]
  - DIZZINESS [None]
  - FATIGUE [None]
  - PAIN IN EXTREMITY [None]
  - THIRST [None]
  - THROAT TIGHTNESS [None]
  - URINARY TRACT INFECTION [None]
  - VISION BLURRED [None]
